FAERS Safety Report 21135843 (Version 1)
Quarter: 2022Q3

REPORT INFORMATION
  Report Type: Report from Study
  Country: US (occurrence: US)
  Receive Date: 20220727
  Receipt Date: 20220727
  Transmission Date: 20221026
  Serious: Yes (Hospitalization, Other)
  Sender: FDA-Public Use
  Company Number: US-GILEAD-2022-0590298

PATIENT
  Age: 9 Year
  Sex: Male

DRUGS (25)
  1. AZTREONAM LYSINE [Suspect]
     Active Substance: AZTREONAM LYSINE
     Indication: Cystic fibrosis
     Dosage: 75 MG, TID, ROTATE MONTHS W ITH TOBRAMYCIN EVERY OTHER MONTH
     Route: 055
     Dates: start: 20180406, end: 202207
  2. MINERALS\VITAMINS [Concomitant]
     Active Substance: MINERALS\VITAMINS
     Dates: start: 20170106
  3. AZITHROMYCIN [Concomitant]
     Active Substance: AZITHROMYCIN
     Dates: start: 20210812
  4. BACITRACIN [Concomitant]
     Active Substance: BACITRACIN
     Dates: start: 20170106
  5. BETHKIS [Concomitant]
     Active Substance: TOBRAMYCIN
     Dates: start: 20220223
  6. BOOST KID ESSENTIALS 1.0 [Concomitant]
     Dates: start: 20170106
  7. CIPROFLOXACIN [Concomitant]
     Active Substance: CIPROFLOXACIN
     Dates: start: 20170106
  8. COLISTIMETHATE SODIUM [Concomitant]
     Active Substance: COLISTIMETHATE SODIUM
     Dates: start: 20220718
  9. CREON [Concomitant]
     Active Substance: PANCRELIPASE AMYLASE\PANCRELIPASE LIPASE\PANCRELIPASE PROTEASE
     Dates: start: 20170106
  10. DOCUSATE SOD [Concomitant]
     Dates: start: 20151203
  11. ERYTHROMYCIN ES [ERYTHROMYCIN ETHYLSUCCINATE] [Concomitant]
     Dates: start: 20170106
  12. SODIUM CHLORIDE [Concomitant]
     Active Substance: SODIUM CHLORIDE
     Dates: start: 20170106
  13. IPRATROPIUM [Concomitant]
     Active Substance: IPRATROPIUM
     Dates: start: 20170106
  14. LANTUS [Concomitant]
     Active Substance: INSULIN GLARGINE
     Dates: start: 20220106
  15. LEVOFLOXACIN [Concomitant]
     Active Substance: LEVOFLOXACIN
     Dates: start: 20170106
  16. LORATADINE [Concomitant]
     Active Substance: LORATADINE
     Dates: start: 20170106
  17. MIRALAX [Concomitant]
     Active Substance: POLYETHYLENE GLYCOL 3350
     Dates: start: 20170106
  18. NYSTATIN [Concomitant]
     Active Substance: NYSTATIN
     Dates: start: 20170106
  19. OMEPRAZOLE [Concomitant]
     Active Substance: OMEPRAZOLE
     Dates: start: 20170106
  20. ORKAMBI [Concomitant]
     Active Substance: IVACAFTOR\LUMACAFTOR
     Dates: start: 20191002
  21. PREDNISOLONE [Concomitant]
     Active Substance: PREDNISOLONE
     Dates: start: 20201201
  22. PULMOZYME [Concomitant]
     Active Substance: DORNASE ALFA
     Dates: start: 20191002
  23. QVAR [Concomitant]
     Active Substance: BECLOMETHASONE DIPROPIONATE
     Dates: start: 20170106
  24. TOBRAMYCIN [Concomitant]
     Active Substance: TOBRAMYCIN
     Dates: start: 20170106
  25. VITAMIN D3 [Concomitant]
     Active Substance: CHOLECALCIFEROL
     Dates: start: 20170106

REACTIONS (2)
  - Cystic fibrosis [Recovered/Resolved]
  - Pulmonary function test decreased [Recovered/Resolved]
